FAERS Safety Report 21784307 (Version 2)
Quarter: 2023Q2

REPORT INFORMATION
  Report Type: Spontaneous
  Country: CO (occurrence: CO)
  Receive Date: 20221227
  Receipt Date: 20230620
  Transmission Date: 20230721
  Serious: Yes (Hospitalization, Other)
  Sender: FDA-Public Use
  Company Number: CO-DSJP-DSE-2022-146578

PATIENT
  Age: 69 Year
  Sex: Female

DRUGS (2)
  1. EFFIENT [Suspect]
     Active Substance: PRASUGREL HYDROCHLORIDE
     Indication: Acute myocardial infarction
     Dosage: 10 MG, ONCE EVERY 12HR
     Route: 048
     Dates: start: 20220910
  2. ASPIRIN [Concomitant]
     Active Substance: ASPIRIN
     Indication: Acute myocardial infarction
     Dosage: UNK, MG
     Route: 048

REACTIONS (2)
  - Colon cancer [Unknown]
  - Chemotherapy [Unknown]

NARRATIVE: CASE EVENT DATE: 20230603
